FAERS Safety Report 26027692 (Version 1)
Quarter: 2025Q4

REPORT INFORMATION
  Report Type: Spontaneous
  Country: EU (occurrence: EU)
  Receive Date: 20251111
  Receipt Date: 20251111
  Transmission Date: 20260118
  Serious: Yes (Other)
  Sender: INCYTE
  Company Number: EU-INCYTE CORPORATION-2025IN012339

PATIENT

DRUGS (1)
  1. PEMAZYRE [Suspect]
     Active Substance: PEMIGATINIB
     Indication: Cholangiocarcinoma
     Dosage: UNK
     Route: 065

REACTIONS (11)
  - Central serous chorioretinopathy [Unknown]
  - Cholangiocarcinoma [Unknown]
  - Paraesthesia [Unknown]
  - Skin hyperpigmentation [Unknown]
  - Mucosal inflammation [Unknown]
  - Disease progression [Unknown]
  - Hyperphosphataemia [Unknown]
  - Nail dystrophy [Unknown]
  - Dry skin [Unknown]
  - Stomatitis [Unknown]
  - Alopecia [Unknown]
